FAERS Safety Report 4694372-0 (Version None)
Quarter: 2005Q2

REPORT INFORMATION
  Report Type: 
  Country: None (occurrence: None)
  Receive Date: 20050614
  Receipt Date: 20050307
  Transmission Date: 20051028
  Serious: No
  Sender: FDA-Public Use
  Company Number: USA050392557

PATIENT
  Age: 63 Year
  Sex: Male
  Weight: 82 kg

DRUGS (3)
  1. CIALIS [Suspect]
     Indication: ERECTILE DYSFUNCTION
     Dosage: 20 MG
  2. MONOPRIL [Concomitant]
  3. SYNTHROID [Concomitant]

REACTIONS (3)
  - FLATULENCE [None]
  - SALIVA ALTERED [None]
  - STOMACH DISCOMFORT [None]
